FAERS Safety Report 6405934-4 (Version None)
Quarter: 2009Q4

REPORT INFORMATION
  Report Type: 
  Country: None (occurrence: None)
  Receive Date: 20091016
  Receipt Date: 20091016
  Transmission Date: 20100525
  Serious: Yes (Other)
  Sender: FDA-Public Use
  Company Number: None

PATIENT
  Sex: Male
  Weight: 32 kg

DRUGS (1)
  1. TAMIFLU [Suspect]
     Indication: INFLUENZA
     Dosage: 60MG  ONCE -Q12H ORDERED PO
     Route: 048
     Dates: start: 20091008, end: 20091008

REACTIONS (1)
  - ANAPHYLACTIC REACTION [None]
